FAERS Safety Report 6358360-0 (Version None)
Quarter: 2009Q3

REPORT INFORMATION
  Report Type: 
  Country: None (occurrence: None)
  Receive Date: 20090916
  Receipt Date: 20090909
  Transmission Date: 20100115
  Serious: Yes (Other)
  Sender: FDA-Public Use
  Company Number: FR-WYE-G03808409

PATIENT
  Age: 52 Year
  Sex: Male

DRUGS (6)
  1. EFFEXOR [Suspect]
     Dosage: UNKNOWN
     Route: 048
     Dates: end: 20090605
  2. PROPECIA [Suspect]
     Dosage: UNKNOWN
     Dates: end: 20090605
  3. LIPANTHYL [Suspect]
     Dosage: UNKNOWN
     Dates: end: 20090605
  4. ZYLORIC [Suspect]
     Dosage: UNKNOWN
     Dates: end: 20090605
  5. LAROXYL [Suspect]
     Dosage: UNKNOWN
     Dates: start: 20090101, end: 20090605
  6. TOPALGIC [Suspect]
     Dosage: UNKNOWN
     Dates: end: 20090605

REACTIONS (1)
  - ACUTE LEUKAEMIA [None]
